FAERS Safety Report 5713515-0 (Version None)
Quarter: 2008Q2

REPORT INFORMATION
  Report Type: 
  Country: None (occurrence: None)
  Receive Date: 20080422
  Receipt Date: 20080411
  Transmission Date: 20081010
  Serious: Yes (Other)
  Sender: FDA-Public Use
  Company Number: US-ELI_LILLY_AND_COMPANY-US200804003215

PATIENT
  Sex: Female

DRUGS (19)
  1. BYETTA [Suspect]
     Dosage: 10 UG, 2/D
     Route: 058
  2. GLUCOPHAGE [Concomitant]
     Dosage: 500 MG, 2/D
     Route: 048
  3. HUMALOG [Concomitant]
     Dosage: UNK, AS NEEDED
  4. DIABETA [Concomitant]
     Dosage: 5 MG, 2/D
     Route: 048
  5. ACTONEL [Concomitant]
     Indication: OSTEOPOROSIS
     Dosage: 35 MG, WEEKLY (1/W)
     Route: 048
  6. AMITRIPTYLINE HCL [Concomitant]
     Dosage: 25 MG, EACH EVENING
     Route: 048
  7. ASPIRIN [Concomitant]
     Dosage: 81 MG, DAILY (1/D)
     Route: 048
  8. COUMADIN [Concomitant]
     Dosage: 3 MG, QOD
  9. DEMADEX [Concomitant]
     Dosage: 20 MG, 2/D
     Route: 048
  10. FEOSOL [Concomitant]
     Dosage: 325 MG, 2/D
     Route: 048
  11. FOLIC ACID [Concomitant]
     Dosage: 1 MG, DAILY (1/D)
  12. OSCAL [Concomitant]
     Dosage: 500 MG, DAILY (1/D)
     Route: 048
  13. PROTONIX [Concomitant]
     Dosage: 40 MG, DAILY (1/D)
     Route: 048
  14. ALDACTONE [Concomitant]
     Dosage: 25 MG, 2/D
     Route: 048
  15. WELLBUTRIN [Concomitant]
     Dosage: 300 MG, DAILY (1/D)
     Route: 048
  16. ZANAFLEX [Concomitant]
     Dosage: 4 MG, 4/D
     Route: 048
  17. ZOCOR [Concomitant]
     Dosage: 40 MG, DAILY (1/D)
     Route: 048
  18. LOMOTIL [Concomitant]
     Indication: DIARRHOEA
  19. NITROGLYCERIN [Concomitant]
     Dosage: 0.4 MG, AS NEEDED

REACTIONS (1)
  - CEREBROVASCULAR ACCIDENT [None]
